FAERS Safety Report 15309671 (Version 2)
Quarter: 2018Q3

REPORT INFORMATION
  Report Type: Report from Study
  Country: US (occurrence: US)
  Receive Date: 20180823
  Receipt Date: 20180903
  Transmission Date: 20181010
  Serious: Yes (Other)
  Sender: FDA-Public Use
  Company Number: US-TEVA-2018-US-946502

PATIENT
  Age: 53 Year
  Sex: Female

DRUGS (8)
  1. AZATHIOPRINE. [Suspect]
     Active Substance: AZATHIOPRINE
     Indication: MYOPATHY
     Route: 065
  2. CYCLOPHOSPHAMIDE. [Suspect]
     Active Substance: CYCLOPHOSPHAMIDE
     Indication: MYOPATHY
     Route: 048
  3. PREDNISONE. [Concomitant]
     Active Substance: PREDNISONE
     Indication: MYOPATHY
     Route: 065
  4. PREDNISONE. [Concomitant]
     Active Substance: PREDNISONE
     Indication: MYOPATHY
     Dosage: DURING FOLLOW UP
     Route: 065
  5. IMMUNOGLOBULIN [Concomitant]
     Indication: MYOPATHY
     Route: 042
  6. RITUXIMAB. [Concomitant]
     Active Substance: RITUXIMAB
     Indication: MYOPATHY
     Route: 065
  7. MYCOPHENOLATE MOFETIL. [Suspect]
     Active Substance: MYCOPHENOLATE MOFETIL
     Indication: MYOPATHY
     Route: 065
  8. CICLOSPORIN [Suspect]
     Active Substance: CYCLOSPORINE
     Indication: MYOPATHY
     Route: 065

REACTIONS (4)
  - Leukopenia [Unknown]
  - Transaminases increased [Unknown]
  - Sinusitis [Unknown]
  - Upper respiratory tract infection [Unknown]
